FAERS Safety Report 4331047-1 (Version None)
Quarter: 2004Q1

REPORT INFORMATION
  Report Type: 
  Country: None (occurrence: None)
  Receive Date: 20040331
  Receipt Date: 20040323
  Transmission Date: 20041129
  Serious: No
  Sender: FDA-Public Use
  Company Number: 2004UW05602

PATIENT
  Age: 33 Year
  Sex: Female
  Weight: 47.1741 kg

DRUGS (10)
  1. SEROQUEL [Suspect]
     Dosage: 400 MG DAILY PO
     Route: 048
     Dates: start: 20000101
  2. SEROQUEL [Suspect]
     Dosage: 300 MG HS PO
  3. AVANDIA [Concomitant]
  4. GLYBURIDE [Concomitant]
  5. WELLBUTRIN [Concomitant]
  6. BUSPAR [Concomitant]
  7. KLONOPIN [Concomitant]
  8. COGENTIN [Concomitant]
  9. MULTIVITAMIN [Concomitant]
  10. VITAMIN C [Concomitant]

REACTIONS (7)
  - ANGIONEUROTIC OEDEMA [None]
  - ANOREXIA [None]
  - CONVULSION [None]
  - DIABETES MELLITUS [None]
  - GASTROOESOPHAGEAL REFLUX DISEASE [None]
  - RETINAL DETACHMENT [None]
  - SALIVARY HYPERSECRETION [None]
